FAERS Safety Report 8950803 (Version 1)
Quarter: 2012Q4

REPORT INFORMATION
  Report Type: 
  Country: JP (occurrence: JP)
  Receive Date: 20121206
  Receipt Date: 20121206
  Transmission Date: 20130627
  Serious: Yes (Hospitalization)
  Sender: FDA-Public Use
  Company Number: JP-MYLANLABS-2012S1024521

PATIENT
  Age: 9 Year
  Sex: Male
  Weight: 27 kg

DRUGS (5)
  1. LEVETIRACETAM [Suspect]
     Indication: LENNOX-GASTAUT SYNDROME
     Dosage: 125 then 250mg
     Route: 065
  2. VALPROATE [Concomitant]
     Dosage: 700mg
     Route: 065
  3. ZONISAMIDE [Concomitant]
     Dosage: 200mg
     Route: 065
  4. CLOBAZAM [Concomitant]
     Dosage: 6mg
     Route: 065
  5. LAMOTRIGINE [Concomitant]
     Dosage: 10mg
     Route: 065

REACTIONS (1)
  - Status epilepticus [Recovering/Resolving]
